FAERS Safety Report 18586568 (Version 1)
Quarter: 2020Q4

REPORT INFORMATION
  Report Type: Spontaneous
  Country: TR (occurrence: TR)
  Receive Date: 20201207
  Receipt Date: 20201207
  Transmission Date: 20210114
  Serious: Yes (Hospitalization)
  Sender: FDA-Public Use
  Company Number: TR-VIRTUS PHARMACEUTICALS, LLC-2020VTS00095

PATIENT
  Age: 12 Year
  Sex: Female

DRUGS (2)
  1. ALBUTEROL. [Suspect]
     Active Substance: ALBUTEROL
     Dosage: 3 PUFFS OVER 20 MINUTES
  2. ALBUTEROL. [Suspect]
     Active Substance: ALBUTEROL
     Indication: ASTHMA
     Dosage: 2 PUFFS, 3X/DAY

REACTIONS (1)
  - Myocardial infarction [Recovered/Resolved]
